FAERS Safety Report 24642067 (Version 1)
Quarter: 2024Q4

REPORT INFORMATION
  Report Type: Spontaneous
  Country: JP (occurrence: JP)
  Receive Date: 20241120
  Receipt Date: 20241120
  Transmission Date: 20250114
  Serious: Yes (Death, Hospitalization, Other)
  Sender: GILEAD
  Company Number: JP-GILEAD-2024-0687446

PATIENT
  Age: 68 Year
  Sex: Male

DRUGS (5)
  1. YESCARTA [Suspect]
     Active Substance: AXICABTAGENE CILOLEUCEL
     Indication: Diffuse large B-cell lymphoma
     Dosage: UNK
     Route: 065
     Dates: start: 20240909, end: 20240909
  2. CYCLOPHOSPHAMIDE [Concomitant]
     Active Substance: CYCLOPHOSPHAMIDE
     Indication: Lymphodepletion
     Dosage: UNK
  3. CYCLOPHOSPHAMIDE [Concomitant]
     Active Substance: CYCLOPHOSPHAMIDE
     Indication: Chemotherapy
  4. FLUDARABINE PHOSPHATE [Concomitant]
     Active Substance: FLUDARABINE PHOSPHATE
     Indication: Lymphodepletion
     Dosage: UNK
  5. FLUDARABINE PHOSPHATE [Concomitant]
     Active Substance: FLUDARABINE PHOSPHATE
     Indication: Chemotherapy

REACTIONS (13)
  - Disease progression [Fatal]
  - Acidosis [Unknown]
  - Tumour invasion [Unknown]
  - Gastrointestinal haemorrhage [Unknown]
  - Gastrointestinal necrosis [Unknown]
  - Haemorrhagic ascites [Unknown]
  - Intra-abdominal haemorrhage [Unknown]
  - Splenic rupture [Unknown]
  - Lymphadenopathy [Unknown]
  - Blood pressure decreased [Unknown]
  - Immune effector cell-associated neurotoxicity syndrome [Recovered/Resolved]
  - Infection [Unknown]
  - Pyrexia [Not Recovered/Not Resolved]

NARRATIVE: CASE EVENT DATE: 20240901
